FAERS Safety Report 18081873 (Version 7)
Quarter: 2020Q4

REPORT INFORMATION
  Report Type: Spontaneous
  Country: JP (occurrence: JP)
  Receive Date: 20200728
  Receipt Date: 20201229
  Transmission Date: 20210113
  Serious: Yes (Hospitalization, Other)
  Sender: FDA-Public Use
  Company Number: JP-EXELIXIS-CABO-20031315

PATIENT
  Age: 73 Year
  Sex: Male
  Weight: 69.8 kg

DRUGS (7)
  1. LANSOPRAZOLE. [Concomitant]
     Active Substance: LANSOPRAZOLE
     Indication: GASTRIC ULCER
     Dosage: 30 MG, QD
     Route: 048
     Dates: start: 20200522
  2. AMLODIPINE BESILATE [Concomitant]
     Active Substance: AMLODIPINE BESYLATE
     Indication: HYPERTENSION
     Dosage: 2.5 MG, QD
     Route: 048
  3. ELIQUIS [Concomitant]
     Active Substance: APIXABAN
     Indication: THROMBOSIS PROPHYLAXIS
     Dosage: 2.5 MG, BID
     Route: 048
     Dates: start: 20170522
  4. CABOMETYX [Suspect]
     Active Substance: CABOZANTINIB S-MALATE
     Dosage: 20 MG, QD
     Route: 048
     Dates: start: 20201127
  5. CABOMETYX [Suspect]
     Active Substance: CABOZANTINIB S-MALATE
     Indication: RENAL CANCER
     Dosage: 60 MG, QD
     Route: 048
     Dates: start: 20200602, end: 20200613
  6. CABOMETYX [Suspect]
     Active Substance: CABOZANTINIB S-MALATE
     Dosage: 40 MG, QD
     Route: 048
     Dates: start: 20201009, end: 20201113
  7. CABOMETYX [Suspect]
     Active Substance: CABOZANTINIB S-MALATE
     Dosage: 60 MG, QD
     Route: 048
     Dates: start: 20200828, end: 20201008

REACTIONS (9)
  - Stomatitis [Unknown]
  - Dyslipidaemia [Recovered/Resolved]
  - Diarrhoea [Unknown]
  - Abdominal operation [Unknown]
  - Hypothyroidism [Not Recovered/Not Resolved]
  - Diarrhoea [Recovered/Resolved]
  - Cholecystitis [Recovered/Resolved]
  - Condition aggravated [Recovered/Resolved]
  - Post procedural infection [Unknown]

NARRATIVE: CASE EVENT DATE: 20200712
